FAERS Safety Report 5680109-5 (Version None)
Quarter: 2008Q1

REPORT INFORMATION
  Report Type: 
  Country: None (occurrence: None)
  Receive Date: 20080326
  Receipt Date: 20080320
  Transmission Date: 20080703
  Serious: Yes (Hospitalization, Other)
  Sender: FDA-Public Use
  Company Number: GB-WYE-G01259808

PATIENT
  Sex: Male

DRUGS (9)
  1. EFFEXOR [Suspect]
     Indication: DEPRESSION
     Route: 048
     Dates: start: 20071019, end: 20071201
  2. EFFEXOR [Suspect]
     Route: 048
     Dates: start: 20071201
  3. EFFEXOR [Suspect]
     Dosage: WEANING HIMSELF OFF
     Dates: start: 20080315
  4. INBESTAN [Concomitant]
     Indication: HYPERTENSION
     Dosage: UNKNOWN
  5. ZOPICLONE [Concomitant]
     Indication: SLEEP DISORDER
     Dosage: 7.5MG NOCTE
     Route: 048
     Dates: start: 20070901, end: 20071201
  6. LORAZEPAM [Concomitant]
     Dosage: 1MG PRN
     Route: 048
     Dates: start: 20070901, end: 20071201
  7. INSULIN [Concomitant]
     Indication: DIABETES MELLITUS
     Dosage: UNKNOWN
  8. RISPERIDONE [Concomitant]
     Indication: ANXIETY
     Dosage: 1MG NOCTE
     Route: 048
     Dates: start: 20071008, end: 20071210
  9. RISPERIDONE [Concomitant]
     Dosage: 1 MG NOCTE
     Route: 048
     Dates: start: 20080219

REACTIONS (4)
  - CONDITION AGGRAVATED [None]
  - HYPERTENSION [None]
  - OVERDOSE [None]
  - PROTEINURIA [None]
